FAERS Safety Report 5820279-9 (Version None)
Quarter: 2008Q3

REPORT INFORMATION
  Report Type: 
  Country: None (occurrence: None)
  Receive Date: 20080724
  Receipt Date: 20070530
  Transmission Date: 20090109
  Serious: No
  Sender: FDA-Public Use
  Company Number: A0653493A

PATIENT
  Age: 53 Year
  Sex: Female

DRUGS (4)
  1. AVANDIA [Suspect]
     Dosage: 8MG PER DAY
     Route: 048
  2. METFORMIN [Concomitant]
  3. SPIRONOLACTONE [Concomitant]
  4. DIOVAN [Concomitant]

REACTIONS (2)
  - FEELING HOT [None]
  - PANIC ATTACK [None]
